FAERS Safety Report 12862268 (Version 1)
Quarter: 2016Q4

REPORT INFORMATION
  Report Type: Spontaneous
  Country: US (occurrence: US)
  Receive Date: 20161018
  Receipt Date: 20161018
  Transmission Date: 20170207
  Serious: Yes (Life-Threatening, Hospitalization, Other)
  Sender: FDA-Public Use
  Company Number: None

PATIENT
  Age: 69 Year
  Sex: Female
  Weight: 63 kg

DRUGS (4)
  1. REMICADE [Suspect]
     Active Substance: INFLIXIMAB
     Indication: PSORIATIC ARTHROPATHY
     Route: 042
     Dates: start: 20160527, end: 20160926
  2. PACEMAKER [Concomitant]
  3. ELIQUIS [Concomitant]
     Active Substance: APIXABAN
  4. METROPOPOL [Concomitant]

REACTIONS (7)
  - Atrial fibrillation [None]
  - Pain in extremity [None]
  - Immobile [None]
  - Pain [None]
  - Back pain [None]
  - Heart rate irregular [None]
  - Dehydration [None]

NARRATIVE: CASE EVENT DATE: 20160604
